FAERS Safety Report 18410455 (Version 1)
Quarter: 2020Q4

REPORT INFORMATION
  Report Type: Spontaneous
  Country: US (occurrence: US)
  Receive Date: 20201021
  Receipt Date: 20201021
  Transmission Date: 20210114
  Serious: Yes (Other)
  Sender: FDA-Public Use
  Company Number: None

PATIENT
  Age: 32 Year
  Sex: Female
  Weight: 111.13 kg

DRUGS (3)
  1. KYLEENA [Suspect]
     Active Substance: LEVONORGESTREL
     Dates: start: 20200928, end: 20201013
  2. IRON [Concomitant]
     Active Substance: IRON
  3. MULTIVITAMIN [Concomitant]
     Active Substance: VITAMINS

REACTIONS (3)
  - Vaginal haemorrhage [None]
  - Uterine haemorrhage [None]
  - Complication of device removal [None]

NARRATIVE: CASE EVENT DATE: 20201016
